FAERS Safety Report 17196784 (Version 1)
Quarter: 2019Q4

REPORT INFORMATION
  Report Type: Spontaneous
  Country: US (occurrence: US)
  Receive Date: 20191224
  Receipt Date: 20191224
  Transmission Date: 20200122
  Serious: Yes (Death, Hospitalization, Other)
  Sender: FDA-Public Use
  Company Number: US-TEVA-2019-US-1157554

PATIENT
  Age: 75 Year
  Sex: Female

DRUGS (1)
  1. METHOTREXATE. [Suspect]
     Active Substance: METHOTREXATE
     Dosage: 2.5 MILLIGRAM DAILY;
     Route: 065

REACTIONS (13)
  - Pancytopenia [Unknown]
  - Sepsis [Unknown]
  - Wrong product administered [Unknown]
  - Respiratory distress [Unknown]
  - Bradycardia [Unknown]
  - Product prescribing error [Unknown]
  - Hypotension [Unknown]
  - Hypoxia [Unknown]
  - Obstructive airways disorder [Unknown]
  - Organ failure [Unknown]
  - Cardiac arrest [Fatal]
  - Melaena [Unknown]
  - Anuria [Unknown]
